FAERS Safety Report 7444552-6 (Version None)
Quarter: 2011Q2

REPORT INFORMATION
  Report Type: 
  Country: None (occurrence: None)
  Receive Date: 20110427
  Receipt Date: 20110427
  Transmission Date: 20111010
  Serious: No
  Sender: FDA-Public Use
  Company Number: None

PATIENT
  Sex: Female

DRUGS (2)
  1. LAMICTAL [Suspect]
     Dosage: 1 PO #60 BID
     Route: 048
  2. LAMICTAL [Suspect]
     Dosage: 1 PO #30 QAM
     Route: 048

REACTIONS (3)
  - RASH [None]
  - TREATMENT NONCOMPLIANCE [None]
  - AFFECTIVE DISORDER [None]
